FAERS Safety Report 9397529 (Version 1)
Quarter: 2013Q3

REPORT INFORMATION
  Report Type: Report from Study
  Country: CA (occurrence: CA)
  Receive Date: 20130712
  Receipt Date: 20130712
  Transmission Date: 20140515
  Serious: Yes (Other)
  Sender: FDA-Public Use
  Company Number: CA-JNJFOC-20130704044

PATIENT
  Sex: Female
  Weight: 75.8 kg

DRUGS (4)
  1. REMICADE [Suspect]
     Indication: CROHN^S DISEASE
     Route: 042
     Dates: start: 20031028
  2. VENTOLIN [Suspect]
     Indication: PRODUCT USED FOR UNKNOWN INDICATION
     Route: 065
  3. VENLAFAXINE [Concomitant]
     Route: 065
  4. CILAZAPRIL [Concomitant]
     Route: 065

REACTIONS (3)
  - Myocardial infarction [Unknown]
  - Hypotension [Unknown]
  - Dizziness [Unknown]
